FAERS Safety Report 18110831 (Version 2)
Quarter: 2020Q3

REPORT INFORMATION
  Report Type: Spontaneous
  Country: US (occurrence: US)
  Receive Date: 20200804
  Receipt Date: 20200814
  Transmission Date: 20201103
  Serious: Yes (Other)
  Sender: FDA-Public Use
  Company Number: US-JNJFOC-20200802718

PATIENT
  Sex: Female

DRUGS (6)
  1. VELCADE [Concomitant]
     Active Substance: BORTEZOMIB
     Route: 065
  2. POMALYST [Concomitant]
     Active Substance: POMALIDOMIDE
  3. REVLIMID [Concomitant]
     Active Substance: LENALIDOMIDE
  4. THALOMID [Concomitant]
     Active Substance: THALIDOMIDE
  5. KYPROLIS [Concomitant]
     Active Substance: CARFILZOMIB
  6. DARZALEX [Suspect]
     Active Substance: DARATUMUMAB
     Indication: PLASMA CELL MYELOMA
     Route: 042

REACTIONS (1)
  - Treatment failure [Unknown]
